FAERS Safety Report 7151117-2 (Version None)
Quarter: 2010Q4

REPORT INFORMATION
  Report Type: 
  Country: None (occurrence: None)
  Receive Date: 20101210
  Receipt Date: 20101130
  Transmission Date: 20110411
  Serious: Yes (Hospitalization, Other)
  Sender: FDA-Public Use
  Company Number: ZA-BRISTOL-MYERS SQUIBB COMPANY-15413339

PATIENT
  Age: 7 Year
  Sex: Female

DRUGS (10)
  1. EFAVIRENZ [Suspect]
     Indication: HIV INFECTION
     Route: 048
  2. CYCLOSERINE [Interacting]
  3. ETHAMBUTOL HYDROCHLORIDE [Concomitant]
  4. LAMIVUDINE [Concomitant]
  5. PYRAZINAMIDE [Concomitant]
  6. ETHIONAMIDE [Concomitant]
  7. AMINOSALICYLIC ACID [Concomitant]
  8. AMOXICILLIN AND CLAVULANATE POTASSIUM [Concomitant]
  9. CAPREOMYCIN [Concomitant]
  10. CLARITHROMYCIN [Concomitant]

REACTIONS (2)
  - ACUTE PSYCHOSIS [None]
  - DRUG INTERACTION [None]
